FAERS Safety Report 11156136 (Version 1)
Quarter: 2015Q2

REPORT INFORMATION
  Report Type: Spontaneous
  Country: US (occurrence: None)
  Receive Date: 20150601
  Receipt Date: 20150601
  Transmission Date: 20150821
  Serious: Yes (Disabling)
  Sender: FDA-Public Use
  Company Number: None

PATIENT
  Age: 24 Year
  Sex: Male
  Weight: 72.58 kg

DRUGS (12)
  1. ZINC [Concomitant]
     Active Substance: ZINC\ZINC CHLORIDE
  2. VITAMIN K [Concomitant]
     Active Substance: PHYTONADIONE
  3. CENTRUM ADULTS [Concomitant]
  4. VITAMIN D [Concomitant]
     Active Substance: CHOLECALCIFEROL
  5. FINASTERIDE 5MG [Suspect]
     Active Substance: FINASTERIDE
     Indication: HAIR DISORDER
     Dosage: 15 ONCE DAILY
     Route: 048
     Dates: start: 20141003, end: 20141006
  6. MAGNESIUM [Concomitant]
     Active Substance: MAGNESIUM
  7. FISH OILS [Concomitant]
  8. ASHWAGHANDA [Concomitant]
  9. FO-TI [Concomitant]
  10. ARGININE [Concomitant]
     Active Substance: ARGININE
  11. CREATINE [Concomitant]
     Active Substance: CREATINE
  12. CALCIUM [Concomitant]
     Active Substance: CALCIUM

REACTIONS (10)
  - Penile size reduced [None]
  - Insomnia [None]
  - Fat tissue increased [None]
  - Muscle atrophy [None]
  - Depression [None]
  - Loss of libido [None]
  - Skin wrinkling [None]
  - Suicidal ideation [None]
  - Dark circles under eyes [None]
  - Lipoatrophy [None]

NARRATIVE: CASE EVENT DATE: 20141003
